FAERS Safety Report 9302868 (Version 3)
Quarter: 2013Q3

REPORT INFORMATION
  Report Type: Spontaneous
  Country: US (occurrence: None)
  Receive Date: 20130517
  Receipt Date: 20130925
  Transmission Date: 20140515
  Serious: Yes (Other)
  Sender: FDA-Public Use
  Company Number: ADR-2013-00695

PATIENT
  Sex: Female

DRUGS (3)
  1. BACLOFEN [Suspect]
     Indication: SPINAL PAIN
     Dosage: 180.11 MCG/DAY
  2. BUPIVACAINE [Concomitant]
  3. DILAUDID [Concomitant]

REACTIONS (9)
  - Overdose [None]
  - Sudden onset of sleep [None]
  - Memory impairment [None]
  - Local swelling [None]
  - Pain [None]
  - Swelling [None]
  - Muscle spasms [None]
  - Scoliosis [None]
  - Somnolence [None]
